FAERS Safety Report 8244978-7 (Version None)
Quarter: 2012Q1

REPORT INFORMATION
  Report Type: 
  Country: None (occurrence: None)
  Receive Date: 20120329
  Receipt Date: 20111104
  Transmission Date: 20120608
  Serious: No
  Sender: FDA-Public Use
  Company Number: US-MYLANLABS-2011S1022943

PATIENT
  Age: 90 Year
  Sex: Male

DRUGS (5)
  1. FENTANYL-100 [Suspect]
     Indication: PAIN
     Dosage: Q72H
     Route: 062
     Dates: start: 20101201
  2. LORTAB [Concomitant]
  3. AMBIEN [Concomitant]
  4. XANAX [Concomitant]
  5. PHENERGAN HCL [Concomitant]

REACTIONS (6)
  - FEELING ABNORMAL [None]
  - NERVOUSNESS [None]
  - HALLUCINATION [None]
  - NAUSEA [None]
  - PYREXIA [None]
  - PRURITUS [None]
